FAERS Safety Report 21963535 (Version 2)
Quarter: 2024Q1

REPORT INFORMATION
  Report Type: Spontaneous
  Country: US (occurrence: US)
  Receive Date: 20230207
  Receipt Date: 20240124
  Transmission Date: 20240410
  Serious: No
  Sender: FDA-Public Use
  Company Number: US-ELI_LILLY_AND_COMPANY-US202301013632

PATIENT
  Age: 59 Year
  Sex: Female

DRUGS (1)
  1. MOUNJARO [Suspect]
     Active Substance: TIRZEPATIDE
     Indication: Product used for unknown indication
     Dosage: UNK, UNK,UNKNOWN
     Route: 065
     Dates: start: 202210

REACTIONS (3)
  - Product administered at inappropriate site [Recovering/Resolving]
  - Injury associated with device [Recovering/Resolving]
  - Injection site pain [Recovering/Resolving]
